FAERS Safety Report 22658332 (Version 1)
Quarter: 2023Q2

REPORT INFORMATION
  Report Type: Other
  Country: JP (occurrence: None)
  Receive Date: 20230630
  Receipt Date: 20230630
  Transmission Date: 20230722
  Serious: Yes (Hospitalization, Other)
  Sender: FDA-Public Use
  Company Number: JP-Navinta LLC-000450

PATIENT
  Age: 33 Year
  Sex: Female
  Weight: 89.6 kg

DRUGS (4)
  1. NICARDIPINE [Suspect]
     Active Substance: NICARDIPINE
     Indication: Retinopathy hypertensive
     Dosage: 10 MG/H
     Route: 042
  2. AMLODIPINE [Concomitant]
     Active Substance: AMLODIPINE BESYLATE
     Indication: Retinopathy hypertensive
     Route: 048
  3. NIFEDIPINE [Concomitant]
     Active Substance: NIFEDIPINE
     Indication: Retinopathy hypertensive
     Route: 048
  4. NICARDIPINE [Suspect]
     Active Substance: NICARDIPINE
     Indication: Retinopathy hypertensive
     Dosage: 2 MG/H
     Route: 042

REACTIONS (3)
  - Optic ischaemic neuropathy [Recovered/Resolved]
  - Renal impairment [Recovered/Resolved]
  - Blood creatinine increased [Recovered/Resolved]
